FAERS Safety Report 9727965 (Version 2)
Quarter: 2013Q4

REPORT INFORMATION
  Report Type: Spontaneous
  Country: AU (occurrence: AU)
  Receive Date: 20131204
  Receipt Date: 20131212
  Transmission Date: 20140711
  Serious: Yes (Other)
  Sender: FDA-Public Use
  Company Number: AU-AMGEN-AUSSP2013085241

PATIENT
  Age: 48 Year
  Sex: Female

DRUGS (7)
  1. ENBREL [Suspect]
     Indication: PSORIATIC ARTHROPATHY
     Dosage: 50 MG, WEEKLY
     Route: 065
     Dates: start: 20131125
  2. ACETYLSALICYLIC ACID [Concomitant]
     Dosage: UNK
  3. PREGABALIN [Concomitant]
     Dosage: UNK
  4. MOBIC [Concomitant]
     Dosage: UNK
  5. ENDEP [Concomitant]
     Dosage: UNK
  6. PANADEINE                          /00116401/ [Concomitant]
     Dosage: UNK
  7. MICARDIS [Concomitant]
     Dosage: UNK

REACTIONS (11)
  - Hypertension [Unknown]
  - Muscle spasms [Unknown]
  - Musculoskeletal disorder [Unknown]
  - Headache [Unknown]
  - Amnesia [Unknown]
  - Feeling hot [Unknown]
  - Malaise [Unknown]
  - Neuralgia [Unknown]
  - Feeling abnormal [Unknown]
  - Impaired driving ability [Unknown]
  - Arthropathy [Unknown]
